FAERS Safety Report 5330333-6 (Version None)
Quarter: 2007Q2

REPORT INFORMATION
  Report Type: 
  Country: None (occurrence: None)
  Receive Date: 20070521
  Receipt Date: 20070417
  Transmission Date: 20071010
  Serious: Yes (Other)
  Sender: FDA-Public Use
  Company Number: US-PFIZER INC-2006066200

PATIENT
  Sex: Female

DRUGS (1)
  1. DEPO-PROVERA SUSPENSION/INJ [Suspect]
     Indication: OVARIAN CYST
     Dosage: FREQ:ONLY THREE SHOTS WERE ADMINISTERED
     Route: 030

REACTIONS (4)
  - AMENORRHOEA [None]
  - GENITAL INFECTION FEMALE [None]
  - INFERTILITY FEMALE [None]
  - WEIGHT INCREASED [None]
